FAERS Safety Report 5491850-1 (Version None)
Quarter: 2007Q4

REPORT INFORMATION
  Report Type: 
  Country: None (occurrence: None)
  Receive Date: 20071022
  Receipt Date: 20071012
  Transmission Date: 20080405
  Serious: Yes (Death)
  Sender: FDA-Public Use
  Company Number: US-JNJFOC-20071003323

PATIENT
  Age: 85 Year
  Sex: Female

DRUGS (1)
  1. REOPRO [Suspect]
     Indication: ACUTE MYOCARDIAL INFARCTION
     Dosage: RECEIVED 10 MIN INFUSION

REACTIONS (1)
  - CARDIO-RESPIRATORY ARREST [None]
